FAERS Safety Report 9399821 (Version 1)
Quarter: 2013Q3

REPORT INFORMATION
  Report Type: Spontaneous
  Country: US (occurrence: None)
  Receive Date: 20130710
  Receipt Date: 20130710
  Transmission Date: 20140515
  Serious: Yes (Hospitalization)
  Sender: FDA-Public Use
  Company Number: DSU-2013-03871

PATIENT
  Sex: Male

DRUGS (3)
  1. WELCHOL [Suspect]
     Indication: HYPERCHOLESTEROLAEMIA
     Route: 048
  2. WELCHOL [Suspect]
     Indication: TYPE 2 DIABETES MELLITUS
     Route: 048
  3. UNSPECIFIED MEDICATIONS (ALL OTHER THERAPEUTIC PRODUCTS) [Suspect]
     Indication: PRODUCT USED FOR UNKNOWN INDICATION

REACTIONS (1)
  - Overdose [None]
